FAERS Safety Report 5134737-6 (Version None)
Quarter: 2006Q4

REPORT INFORMATION
  Report Type: 
  Country: None (occurrence: None)
  Receive Date: 20061025
  Receipt Date: 20061018
  Transmission Date: 20070319
  Serious: Yes (Other)
  Sender: FDA-Public Use
  Company Number: 2006AP05002

PATIENT
  Age: 16 Year
  Sex: Female

DRUGS (1)
  1. DIPRIVAN [Suspect]
     Route: 042
     Dates: start: 20040401, end: 20040401

REACTIONS (1)
  - HYPERTHERMIA MALIGNANT [None]
